FAERS Safety Report 7793384-8 (Version None)
Quarter: 2011Q4

REPORT INFORMATION
  Report Type: 
  Country: None (occurrence: None)
  Receive Date: 20111003
  Receipt Date: 20110525
  Transmission Date: 20120403
  Serious: No
  Sender: FDA-Public Use
  Company Number: US-BAYER-2011-045975

PATIENT
  Age: 65 Year
  Sex: Male

DRUGS (9)
  1. ALBUTEROL INHALER [Concomitant]
  2. SOMA [Concomitant]
  3. FORODESINE [Concomitant]
  4. ASPIRIN [Concomitant]
  5. AVELOX [Suspect]
     Dosage: 400 MG, QD
     Route: 048
     Dates: start: 20110223, end: 20110302
  6. SIMVASTATIN [Concomitant]
  7. CLARITIN-D 24 HOUR [Concomitant]
  8. METOPROLOL TARTRATE [Concomitant]
  9. CODEINE [Concomitant]

REACTIONS (2)
  - DYSGEUSIA [None]
  - AGEUSIA [None]
